FAERS Safety Report 16417406 (Version 3)
Quarter: 2019Q3

REPORT INFORMATION
  Report Type: Spontaneous
  Country: US (occurrence: US)
  Receive Date: 20190611
  Receipt Date: 20190709
  Transmission Date: 20191004
  Serious: Yes (Other)
  Sender: FDA-Public Use
  Company Number: US-009507513-1906USA002132

PATIENT
  Age: 29 Year
  Sex: Female
  Weight: 124.26 kg

DRUGS (3)
  1. PHENTERMINE. [Concomitant]
     Active Substance: PHENTERMINE
  2. NEXPLANON [Suspect]
     Active Substance: ETONOGESTREL
     Indication: CONTRACEPTION
     Dosage: 1 IMPLANT, UNK
     Route: 059
     Dates: start: 20180218
  3. METFORMIN [Concomitant]
     Active Substance: METFORMIN HYDROCHLORIDE

REACTIONS (6)
  - Pregnancy with implant contraceptive [Recovered/Resolved]
  - Abortion spontaneous [Recovered/Resolved]
  - Unintended pregnancy [Recovered/Resolved]
  - Complication associated with device [Not Recovered/Not Resolved]
  - Complication of device removal [Not Recovered/Not Resolved]
  - Product dose omission [Unknown]

NARRATIVE: CASE EVENT DATE: 2019
